FAERS Safety Report 14332080 (Version 2)
Quarter: 2018Q3

REPORT INFORMATION
  Report Type: Spontaneous
  Country: GB (occurrence: GB)
  Receive Date: 20171228
  Receipt Date: 20180802
  Transmission Date: 20181010
  Serious: Yes (Other)
  Sender: FDA-Public Use
  Company Number: GB-TEVA-2017-GB-837253

PATIENT
  Age: 50 Year
  Sex: Male

DRUGS (3)
  1. PARACETAMOL [Concomitant]
     Active Substance: ACETAMINOPHEN
     Indication: ANALGESIC THERAPY
     Dosage: AS NECESSARY
     Route: 065
  2. IBUPROFEN. [Concomitant]
     Active Substance: IBUPROFEN
     Indication: ANALGESIC THERAPY
     Dosage: AS NECESSARY
     Route: 065
  3. TRIMETHOPRIM TABLETS BP 200 MG [Suspect]
     Active Substance: TRIMETHOPRIM
     Indication: PROSTATITIS
     Dosage: 400 MILLIGRAM DAILY; ONE TABLET IN THE MORNING AND ONE IN THE EVENING
     Route: 065
     Dates: start: 20171123, end: 20171124

REACTIONS (7)
  - Pain [Recovering/Resolving]
  - Neck pain [Recovering/Resolving]
  - Anxiety [Not Recovered/Not Resolved]
  - Dizziness [Not Recovered/Not Resolved]
  - Balance disorder [Recovering/Resolving]
  - Headache [Not Recovered/Not Resolved]
  - Confusional state [Recovered/Resolved]

NARRATIVE: CASE EVENT DATE: 20171124
